FAERS Safety Report 22238261 (Version 1)
Quarter: 2023Q2

REPORT INFORMATION
  Report Type: Spontaneous
  Country: US (occurrence: US)
  Receive Date: 20230421
  Receipt Date: 20230421
  Transmission Date: 20230722
  Serious: Yes (Other)
  Sender: FDA-Public Use
  Company Number: US-ALKEM LABORATORIES LIMITED-US-ALKEM-2023-02774

PATIENT
  Sex: Female

DRUGS (9)
  1. ASPIRIN [Suspect]
     Active Substance: ASPIRIN
     Indication: Product used for unknown indication
     Dosage: 81 MILLIGRAM, QD (DAILY)
     Route: 065
  2. AZATHIOPRINE [Suspect]
     Active Substance: AZATHIOPRINE
     Indication: Immunosuppressant drug therapy
     Dosage: UNK
     Route: 065
  3. METHYLPREDNISOLONE [Suspect]
     Active Substance: METHYLPREDNISOLONE
     Indication: Immunosuppressant drug therapy
     Dosage: 1000 MILLIGRAM (AT THE TIME OF TRANSPLANTATION)
     Route: 065
  4. METHYLPREDNISOLONE [Suspect]
     Active Substance: METHYLPREDNISOLONE
     Dosage: 1.5 GRAM (DAY 22)
     Route: 065
  5. METHYLPREDNISOLONE [Suspect]
     Active Substance: METHYLPREDNISOLONE
     Dosage: 2.5 GRAM (DAY 1012)
     Route: 065
  6. TACROLIMUS [Suspect]
     Active Substance: TACROLIMUS
     Indication: Immunosuppressant drug therapy
     Dosage: 0.05 MILLIGRAM/KILOGRAM, BID IMMEDIAT RELEASE
     Route: 048
  7. TACROLIMUS [Suspect]
     Active Substance: TACROLIMUS
     Dosage: UNK (3 MO PT) (EXTENDED-RELEASE)
     Route: 048
  8. TACROLIMUS [Suspect]
     Active Substance: TACROLIMUS
     Dosage: UNK (1-Y PT) (EXTENDED-RELEASE)
     Route: 048
  9. ANTI-THYMOCYTE GLOBULIN (RABBIT) NOS [Suspect]
     Active Substance: LAPINE T-LYMPHOCYTE IMMUNE GLOBULIN
     Indication: Immunosuppressant drug therapy
     Dosage: 4.5 MILLIGRAM/KILOGRAM IN 3 DIVIDED DOSES
     Route: 065

REACTIONS (3)
  - Transplant rejection [Unknown]
  - Exposure during pregnancy [Unknown]
  - Donor specific antibody present [Unknown]
